FAERS Safety Report 20455006 (Version 3)
Quarter: 2022Q2

REPORT INFORMATION
  Report Type: Report from Study
  Country: FR (occurrence: FR)
  Receive Date: 20220210
  Receipt Date: 20220617
  Transmission Date: 20220720
  Serious: Yes (Hospitalization)
  Sender: FDA-Public Use
  Company Number: FR-JNJFOC-20220200968

PATIENT
  Age: 50 Year
  Sex: Female

DRUGS (4)
  1. SPRAVATO [Suspect]
     Active Substance: ESKETAMINE
     Indication: Depression
     Dates: start: 20210301
  2. SPRAVATO [Suspect]
     Active Substance: ESKETAMINE
     Dates: end: 20220105
  3. CHOLECALCIFEROL [Concomitant]
     Active Substance: CHOLECALCIFEROL
     Indication: Vitamin D deficiency
  4. FLUOXETINE [Concomitant]
     Active Substance: FLUOXETINE HYDROCHLORIDE
     Indication: Depression

REACTIONS (2)
  - Fall [Not Recovered/Not Resolved]
  - Pelvic fracture [Not Recovered/Not Resolved]

NARRATIVE: CASE EVENT DATE: 20211117
